FAERS Safety Report 5084277-8 (Version None)
Quarter: 2006Q3

REPORT INFORMATION
  Report Type: 
  Country: None (occurrence: None)
  Receive Date: 20060816
  Receipt Date: 20060805
  Transmission Date: 20061208
  Serious: Yes (Hospitalization)
  Sender: FDA-Public Use
  Company Number: 2006096639

PATIENT
  Age: 50 Year
  Sex: Female
  Weight: 77.1115 kg

DRUGS (3)
  1. BENADRYL [Suspect]
     Indication: HOUSE DUST ALLERGY
     Dosage: 2 TABLETS ONCE ORAL
     Route: 048
     Dates: start: 20050520, end: 20050520
  2. LEVOTHYROXINE SODIUM [Concomitant]
  3. NORMENSAL (ETHINYLESTRADIOL, NORETHISTERONE) [Concomitant]

REACTIONS (2)
  - GRAND MAL CONVULSION [None]
  - MEMORY IMPAIRMENT [None]
